FAERS Safety Report 26086850 (Version 2)
Quarter: 2025Q4

REPORT INFORMATION
  Report Type: Spontaneous
  Country: JP (occurrence: JP)
  Receive Date: 20251125
  Receipt Date: 20251209
  Transmission Date: 20260117
  Serious: Yes (Other)
  Sender: GILEAD
  Company Number: JP-GILEAD-2025-0737725

PATIENT
  Age: 6 Decade
  Sex: Male

DRUGS (2)
  1. VEMLIDY [Suspect]
     Active Substance: TENOFOVIR ALAFENAMIDE FUMARATE
     Indication: Hepatitis B
     Dosage: UNK
     Route: 065
     Dates: start: 202308
  2. FRESH FROZEN PLASMA [BLOOD PLASMA] [Concomitant]

REACTIONS (6)
  - Vascular device infection [Unknown]
  - Intra-abdominal haemorrhage [Unknown]
  - Aspiration [Unknown]
  - Fungaemia [Unknown]
  - Liver transplant [Unknown]
  - Acute kidney injury [Unknown]
